FAERS Safety Report 15890631 (Version 1)
Quarter: 2019Q1

REPORT INFORMATION
  Report Type: Spontaneous
  Country: GB (occurrence: FR)
  Receive Date: 20190130
  Receipt Date: 20190130
  Transmission Date: 20190417
  Serious: Yes (Hospitalization)
  Sender: FDA-Public Use
  Company Number: FR-FRESENIUS KABI-FK201900956

PATIENT
  Age: 53 Year
  Sex: Male

DRUGS (7)
  1. POTASSIUM CHLORIDE/SODIUM CHLORIDE/POLYGELINE [Suspect]
     Active Substance: POLYGELINE\POTASSIUM CHLORIDE\SODIUM CHLORIDE
     Indication: SHOCK HAEMORRHAGIC
     Route: 051
     Dates: start: 20181128, end: 20181128
  2. CALCIUM CHLORIDE. [Suspect]
     Active Substance: CALCIUM CHLORIDE
     Indication: SHOCK HAEMORRHAGIC
     Route: 042
     Dates: start: 20181128, end: 20181128
  3. FACTOR I (FIBRINOGEN) [Suspect]
     Active Substance: FIBRINOGEN HUMAN
     Indication: SHOCK HAEMORRHAGIC
     Route: 042
     Dates: start: 20181128, end: 20181128
  4. SODIUM ACETATE/MALIC ACID/POTASSIUM CHLORIDE/SODIUM CHLORIDE/MAGNESIUM CHLORIDE/CALCIUM CHLORIDE [Concomitant]
     Indication: HYPOTENSION
     Route: 051
     Dates: start: 20181128, end: 20181128
  5. TRANEXAMIC ACID. [Suspect]
     Active Substance: TRANEXAMIC ACID
     Indication: SHOCK HAEMORRHAGIC
     Route: 042
     Dates: start: 20181128, end: 20181128
  6. PROPOFOL (MANUFACTURER UNKNOWN) [Suspect]
     Active Substance: PROPOFOL
     Indication: SEDATIVE THERAPY
     Route: 051
     Dates: start: 20181128, end: 20181128
  7. DESMOPRESSIN ACETATE. [Suspect]
     Active Substance: DESMOPRESSIN ACETATE
     Indication: SHOCK HAEMORRHAGIC
     Route: 051
     Dates: start: 20181128, end: 20181128

REACTIONS (3)
  - Anaphylactic shock [Recovered/Resolved]
  - Erythema [Recovered/Resolved]
  - Hypotension [Recovered/Resolved]

NARRATIVE: CASE EVENT DATE: 20181128
